FAERS Safety Report 4948259-6 (Version None)
Quarter: 2006Q1

REPORT INFORMATION
  Report Type: 
  Country: None (occurrence: None)
  Receive Date: 20060313
  Receipt Date: 20060302
  Transmission Date: 20060701
  Serious: Yes (Hospitalization)
  Sender: FDA-Public Use
  Company Number: MEDI-0004242

PATIENT
  Age: 11 Month
  Sex: Male

DRUGS (3)
  1. SYNAGIS [Suspect]
     Indication: ANTIVIRAL PROPHYLAXIS
     Dosage: 1 IN 30 D INTRAMUSCULAR
     Route: 030
     Dates: start: 20051001, end: 20051001
  2. SALBUTAMOL (SALBUTAMOL) [Concomitant]
  3. ATROVENT [Concomitant]

REACTIONS (2)
  - DRUG INEFFECTIVE [None]
  - RESPIRATORY SYNCYTIAL VIRUS INFECTION [None]
